FAERS Safety Report 7655673-7 (Version None)
Quarter: 2011Q3

REPORT INFORMATION
  Report Type: 
  Country: None (occurrence: None)
  Receive Date: 20110804
  Receipt Date: 20110802
  Transmission Date: 20111222
  Serious: Yes (Death)
  Sender: FDA-Public Use
  Company Number: GB-PFIZER INC-2011176931

PATIENT
  Age: 50 Year

DRUGS (6)
  1. SERTRALINE [Concomitant]
     Dosage: 50 MG, 1X/DAY
     Route: 048
  2. QVAR 40 [Concomitant]
     Dosage: 100 UG, 2X/DAY
  3. LYRICA [Suspect]
     Dosage: 150 MG, 4X/DAY
     Route: 048
  4. QUETIAPINE [Concomitant]
     Dosage: 50 MG, 1X/DAY
     Route: 048
  5. LANSOPRAZOLE [Concomitant]
     Dosage: 30 MG, 1X/DAY
     Route: 048
  6. SALBUTAMOL [Concomitant]
     Dosage: 200 UG, AS NEEDED

REACTIONS (1)
  - MYOCARDIAL INFARCTION [None]
